FAERS Safety Report 23081727 (Version 2)
Quarter: 2023Q4

REPORT INFORMATION
  Report Type: Spontaneous
  Country: JP (occurrence: JP)
  Receive Date: 20231019
  Receipt Date: 20231031
  Transmission Date: 20240110
  Serious: Yes (Hospitalization)
  Sender: FDA-Public Use
  Company Number: JP-DSJP-DSJ-2023-142017

PATIENT
  Age: 73 Year
  Sex: Female

DRUGS (2)
  1. DENOSUMAB [Suspect]
     Active Substance: DENOSUMAB
     Indication: Metastases to spine
     Dosage: UNK, 29 TIMES IN TOTAL
     Route: 065
  2. BP [Suspect]
     Active Substance: CYCLOMETHICONE 5
     Indication: Osteoporosis
     Dosage: UNK
     Route: 048

REACTIONS (5)
  - Sinusitis [Recovering/Resolving]
  - Periorbital abscess [Recovering/Resolving]
  - Osteonecrosis of jaw [Unknown]
  - Thrombosis [Unknown]
  - Periodontal disease [Unknown]
